FAERS Safety Report 5335751-8 (Version None)
Quarter: 2007Q1

REPORT INFORMATION
  Report Type: 
  Country: None (occurrence: None)
  Receive Date: 20070322
  Receipt Date: 20061215
  Transmission Date: 20070707
  Serious: No
  Sender: FDA-Public Use
  Company Number: 2006US002920

PATIENT
  Age: 64 Year
  Sex: Male

DRUGS (6)
  1. VESICARE [Suspect]
     Indication: INCONTINENCE
     Dosage: 5MG, UID/QD, ORAL
     Route: 048
     Dates: start: 20061101, end: 20061101
  2. DIOVAN [Concomitant]
  3. ATENOLOL [Concomitant]
  4. ZETIA [Concomitant]
  5. ASPIRIN [Concomitant]
  6. PRILOSEC [Concomitant]

REACTIONS (1)
  - URINARY INCONTINENCE [None]
